FAERS Safety Report 20808924 (Version 3)
Quarter: 2022Q3

REPORT INFORMATION
  Report Type: Other
  Country: JP (occurrence: JP)
  Receive Date: 20220510
  Receipt Date: 20220706
  Transmission Date: 20221027
  Serious: Yes (Other)
  Sender: FDA-Public Use
  Company Number: JP-CHUGAI-2022011394

PATIENT
  Age: 74 Year
  Sex: Male
  Weight: 56.5 kg

DRUGS (16)
  1. ATEZOLIZUMAB [Suspect]
     Active Substance: ATEZOLIZUMAB
     Indication: Lung adenocarcinoma
     Dosage: 1200 MILLIGRAM, SINGLE
     Route: 041
     Dates: start: 20210420, end: 20210420
  2. ATEZOLIZUMAB [Suspect]
     Active Substance: ATEZOLIZUMAB
     Dosage: 1200 MILLIGRAM, SINGLE
     Route: 041
     Dates: start: 20210520, end: 20210520
  3. ATEZOLIZUMAB [Suspect]
     Active Substance: ATEZOLIZUMAB
     Dosage: 1200 MILLIGRAM, SINGLE
     Route: 041
     Dates: start: 20210623, end: 20210623
  4. ATEZOLIZUMAB [Suspect]
     Active Substance: ATEZOLIZUMAB
     Dosage: 1200 MILLIGRAM
     Route: 041
     Dates: start: 20210727, end: 20210727
  5. CARBOPLATIN [Suspect]
     Active Substance: CARBOPLATIN
     Indication: Lung adenocarcinoma
     Dosage: 387 MILLIGRAM, SINGLE
     Route: 041
     Dates: start: 20210420, end: 20210420
  6. CARBOPLATIN [Suspect]
     Active Substance: CARBOPLATIN
     Dosage: 300 MILLIGRAM, SINGLE
     Route: 041
     Dates: start: 20210520, end: 20210520
  7. CARBOPLATIN [Suspect]
     Active Substance: CARBOPLATIN
     Dosage: 250 MILLIGRAM, SINGLE
     Route: 041
     Dates: start: 20210623, end: 20210623
  8. CARBOPLATIN [Suspect]
     Active Substance: CARBOPLATIN
     Dosage: 250 MILLIGRAM, SINGLE
     Route: 041
     Dates: start: 20210727, end: 20210727
  9. PACLITAXEL [Suspect]
     Active Substance: PACLITAXEL
     Indication: Lung adenocarcinoma
     Dosage: 321 MILLIGRAM, SINGLE
     Route: 041
     Dates: start: 20210420, end: 20210420
  10. PACLITAXEL [Suspect]
     Active Substance: PACLITAXEL
     Dosage: 260 MILLIGRAM, SINGLE
     Route: 041
     Dates: start: 20210520, end: 20210520
  11. PACLITAXEL [Suspect]
     Active Substance: PACLITAXEL
     Dosage: 260 MILLIGRAM, SINGLE
     Route: 041
     Dates: start: 20210623, end: 20210623
  12. PACLITAXEL [Suspect]
     Active Substance: PACLITAXEL
     Dosage: 260 MILLIGRAM, SINGLE
     Route: 041
     Dates: start: 20210727, end: 20210727
  13. BEVACIZUMAB [Concomitant]
     Active Substance: BEVACIZUMAB
     Indication: Lung adenocarcinoma
     Dosage: 848 MILLIGRAM, SINGLE
     Route: 041
     Dates: start: 20210420, end: 20210420
  14. BEVACIZUMAB [Concomitant]
     Active Substance: BEVACIZUMAB
     Dosage: 850 MILLIGRAM, SINGLE
     Route: 041
     Dates: start: 20210520, end: 20210520
  15. BEVACIZUMAB [Concomitant]
     Active Substance: BEVACIZUMAB
     Dosage: 850 MILLIGRAM, SINGLE
     Route: 041
     Dates: start: 20210623, end: 20210623
  16. BEVACIZUMAB [Concomitant]
     Active Substance: BEVACIZUMAB
     Dosage: 850 MILLIGRAM, SINGLE
     Route: 041
     Dates: start: 20210727, end: 20210727

REACTIONS (3)
  - Pulmonary toxicity [Recovered/Resolved]
  - Neutrophil count decreased [Recovered/Resolved]
  - Febrile neutropenia [Recovered/Resolved]

NARRATIVE: CASE EVENT DATE: 20210501
